FAERS Safety Report 15258920 (Version 1)
Quarter: 2018Q3

REPORT INFORMATION
  Report Type: Spontaneous
  Country: US (occurrence: US)
  Receive Date: 20180718
  Receipt Date: 20180718
  Transmission Date: 20181010
  Serious: Yes (Hospitalization)
  Sender: FDA-Public Use
  Company Number: None

PATIENT
  Age: 51 Year
  Sex: Male
  Weight: 89.8 kg

DRUGS (1)
  1. XELODA [Suspect]
     Active Substance: CAPECITABINE
     Dates: end: 20180405

REACTIONS (3)
  - Pelvic pain [None]
  - Abscess [None]
  - Streptococcus test positive [None]

NARRATIVE: CASE EVENT DATE: 20180706
